FAERS Safety Report 9960125 (Version 2)
Quarter: 2014Q1

REPORT INFORMATION
  Report Type: Spontaneous
  Country: US (occurrence: US)
  Receive Date: 20140305
  Receipt Date: 20140305
  Transmission Date: 20141002
  Serious: Yes (Hospitalization)
  Sender: FDA-Public Use
  Company Number: US-ABBVIE-09P-163-0568958-00

PATIENT
  Age: 58 Year
  Sex: Female
  Weight: 70.37 kg

DRUGS (11)
  1. HUMIRA [Suspect]
     Indication: CROHN^S DISEASE
     Route: 058
     Dates: start: 200807
  2. HUMIRA [Suspect]
     Indication: CROHN^S DISEASE
     Dates: start: 20091223
  3. INDERAL LA [Concomitant]
     Indication: HYPERTENSION
     Route: 048
  4. COZAAR [Concomitant]
     Indication: HYPERTENSION
     Route: 048
  5. SYNTHROID [Concomitant]
     Indication: PRODUCT USED FOR UNKNOWN INDICATION
     Route: 048
  6. NEXIUM [Concomitant]
     Indication: GASTROOESOPHAGEAL REFLUX DISEASE
     Route: 048
  7. EFFEXOR XR [Concomitant]
     Indication: DEPRESSION
     Route: 048
  8. NORTRIPTYLINE [Concomitant]
     Indication: DEPRESSION
     Route: 048
  9. XANAX [Concomitant]
     Indication: PRODUCT USED FOR UNKNOWN INDICATION
     Route: 048
  10. HORMONES [Concomitant]
     Indication: HORMONE REPLACEMENT THERAPY
  11. SLEEPING PILL [Concomitant]
     Indication: INSOMNIA
     Route: 048

REACTIONS (6)
  - Ankle fracture [Recovering/Resolving]
  - Injection site pain [Not Recovered/Not Resolved]
  - Oropharyngeal pain [Recovered/Resolved]
  - Cough [Recovered/Resolved]
  - Injection site pain [Not Recovered/Not Resolved]
  - Tooth fracture [Unknown]
